FAERS Safety Report 25663848 (Version 3)
Quarter: 2025Q3

REPORT INFORMATION
  Report Type: Spontaneous
  Country: CN (occurrence: CN)
  Receive Date: 20250811
  Receipt Date: 20250905
  Transmission Date: 20251021
  Serious: Yes (Hospitalization)
  Sender: ALKEM
  Company Number: None

PATIENT
  Age: 34 Year
  Sex: Female
  Weight: 49.1 kg

DRUGS (25)
  1. MYCOPHENOLATE MOFETIL [Suspect]
     Active Substance: MYCOPHENOLATE MOFETIL
     Indication: Immunosuppressant drug therapy
     Dosage: 720 MILLIGRAM, BID (TABLET)
     Route: 065
     Dates: start: 2023
  2. MYCOPHENOLATE MOFETIL [Suspect]
     Active Substance: MYCOPHENOLATE MOFETIL
     Dosage: 540 MILLIGRAM, BID
     Route: 065
     Dates: start: 20230713
  3. MYCOPHENOLATE MOFETIL [Suspect]
     Active Substance: MYCOPHENOLATE MOFETIL
     Dosage: 360 MILLIGRAM, BID
     Route: 065
     Dates: start: 20230727
  4. MYCOPHENOLATE MOFETIL [Suspect]
     Active Substance: MYCOPHENOLATE MOFETIL
     Dosage: 180 MILLIGRAM, BID
     Route: 065
     Dates: start: 20230803
  5. TACROLIMUS [Interacting]
     Active Substance: TACROLIMUS
     Indication: Immunosuppressant drug therapy
     Dosage: 3 MILLIGRAM, BID (CAPSULE)
     Route: 065
     Dates: start: 2023
  6. TACROLIMUS [Interacting]
     Active Substance: TACROLIMUS
     Dosage: 5.5 MILLIGRAM, QD
     Route: 065
     Dates: start: 20230713
  7. TACROLIMUS [Interacting]
     Active Substance: TACROLIMUS
     Dosage: 5 MILLIGRAM, QD
     Route: 065
     Dates: start: 20230710
  8. TACROLIMUS [Interacting]
     Active Substance: TACROLIMUS
     Dosage: 5.5 MILLIGRAM, QD
     Route: 065
     Dates: start: 20230720
  9. TACROLIMUS [Interacting]
     Active Substance: TACROLIMUS
     Dosage: 5.5 MILLIGRAM, QD
     Route: 065
     Dates: start: 20230727
  10. TACROLIMUS [Interacting]
     Active Substance: TACROLIMUS
     Dosage: 6 MILLIGRAM, QD
     Route: 065
     Dates: start: 20230803
  11. TACROLIMUS [Interacting]
     Active Substance: TACROLIMUS
     Dosage: 5.5 MILLIGRAM, QD
     Route: 065
     Dates: start: 20230810
  12. TACROLIMUS [Interacting]
     Active Substance: TACROLIMUS
     Dosage: 4 MILLIGRAM, QD
     Route: 065
     Dates: start: 20230814
  13. TACROLIMUS [Interacting]
     Active Substance: TACROLIMUS
     Dosage: 3.5 MILLIGRAM, QD
     Route: 065
     Dates: start: 20230821
  14. TACROLIMUS [Interacting]
     Active Substance: TACROLIMUS
     Dosage: 3 MILLIGRAM, QD
     Route: 065
     Dates: start: 20230828
  15. TACROLIMUS [Interacting]
     Active Substance: TACROLIMUS
     Dosage: 3 MILLIGRAM, QD
     Route: 065
     Dates: start: 20230914
  16. METRONIDAZOLE [Interacting]
     Active Substance: METRONIDAZOLE
     Indication: Pericoronitis
     Dosage: 200 MILLIGRAM, TID
     Route: 065
     Dates: start: 20230803, end: 20230803
  17. METRONIDAZOLE [Interacting]
     Active Substance: METRONIDAZOLE
     Dosage: 0.5 GRAM, BID
     Route: 042
     Dates: start: 20230802, end: 20230809
  18. METRONIDAZOLE [Interacting]
     Active Substance: METRONIDAZOLE
     Dosage: 200 MILLIGRAM, TID
     Route: 048
     Dates: start: 20230810, end: 20230814
  19. PREDNISONE [Suspect]
     Active Substance: PREDNISONE
     Indication: Immunosuppressant drug therapy
     Dosage: 20 MILLIGRAM, QD
     Route: 065
     Dates: start: 2023
  20. PREDNISONE [Suspect]
     Active Substance: PREDNISONE
     Dosage: 20 MILLIGRAM, QD
     Route: 065
     Dates: start: 20230713
  21. PREDNISONE [Suspect]
     Active Substance: PREDNISONE
     Dosage: 15 MILLIGRAM, QD
     Route: 065
     Dates: start: 20230821
  22. AMOXICILLIN [Concomitant]
     Active Substance: AMOXICILLIN
     Indication: Pericoronitis
     Dosage: 500 MILLIGRAM, TID
     Route: 048
     Dates: start: 202308
  23. AMOXICILLIN [Concomitant]
     Active Substance: AMOXICILLIN
     Dosage: 500 MILLIGRAM, TID
     Route: 048
     Dates: start: 20230810, end: 20230814
  24. CLINDAMYCIN PHOSPHATE [Concomitant]
     Active Substance: CLINDAMYCIN PHOSPHATE
     Indication: Pericoronitis
     Dosage: 0.6 GRAM, BID
     Route: 065
     Dates: start: 20230802, end: 20230803
  25. VITAMIN C [Concomitant]
     Active Substance: ASCORBIC ACID
     Indication: Pericoronitis
     Dosage: 500 MILLIGRAM, QD
     Route: 065
     Dates: start: 20230802, end: 20230803

REACTIONS (5)
  - Tooth impacted [Recovered/Resolved]
  - Drug interaction [Recovered/Resolved]
  - Immunosuppressant drug level increased [Recovered/Resolved]
  - Diarrhoea [Recovered/Resolved]
  - Pericoronitis [Recovered/Resolved]
